FAERS Safety Report 20584666 (Version 2)
Quarter: 2022Q2

REPORT INFORMATION
  Report Type: Spontaneous
  Country: NL (occurrence: NL)
  Receive Date: 20220311
  Receipt Date: 20220407
  Transmission Date: 20220720
  Serious: Yes (Hospitalization)
  Sender: FDA-Public Use
  Company Number: NL-TEVA-2022-NL-2014923

PATIENT
  Age: 75 Year
  Sex: Female
  Weight: 89 kg

DRUGS (43)
  1. VINCRISTINE [Suspect]
     Active Substance: VINCRISTINE
     Indication: Diffuse large B-cell lymphoma stage IV
     Dosage: 2MG/M2 EVERY 3 WEEKS
     Route: 042
     Dates: start: 20210826, end: 20210826
  2. VINCRISTINE [Suspect]
     Active Substance: VINCRISTINE
     Indication: Diffuse large B-cell lymphoma
     Dosage: 1.4 MG/M2, EVERY 3 WEEKS
     Route: 042
     Dates: start: 20210915, end: 20211216
  3. EPCORITAMAB [Suspect]
     Active Substance: EPCORITAMAB
     Indication: Diffuse large B-cell lymphoma stage IV
     Dosage: .16 MILLIGRAM DAILY; PRIMING DOSE, SINGLR
     Route: 058
     Dates: start: 20210826, end: 20210826
  4. EPCORITAMAB [Suspect]
     Active Substance: EPCORITAMAB
     Indication: Diffuse large B-cell lymphoma
     Dosage: .8 MILLIGRAM DAILY; SINGLE
     Route: 058
     Dates: start: 20210901, end: 20210901
  5. EPCORITAMAB [Suspect]
     Active Substance: EPCORITAMAB
     Dosage: 48 MILLIGRAM DAILY; FULL DOSE; WEEKLY (C1-4)
     Route: 058
     Dates: start: 20210908, end: 20211118
  6. EPCORITAMAB [Suspect]
     Active Substance: EPCORITAMAB
     Dosage: (C5-6)
     Route: 058
     Dates: start: 20211125, end: 20211216
  7. EPCORITAMAB [Suspect]
     Active Substance: EPCORITAMAB
     Dosage: (C7)
     Route: 058
     Dates: start: 20210107, end: 20210107
  8. RITUXIMAB [Suspect]
     Active Substance: RITUXIMAB
     Indication: Diffuse large B-cell lymphoma stage IV
     Route: 042
     Dates: start: 20210826, end: 20211216
  9. RITUXIMAB [Suspect]
     Active Substance: RITUXIMAB
     Indication: Diffuse large B-cell lymphoma
  10. CYCLOPHOSPHAMIDE [Suspect]
     Active Substance: CYCLOPHOSPHAMIDE
     Indication: Diffuse large B-cell lymphoma stage IV
     Route: 042
     Dates: start: 20210826, end: 20211216
  11. CYCLOPHOSPHAMIDE [Suspect]
     Active Substance: CYCLOPHOSPHAMIDE
     Indication: Diffuse large B-cell lymphoma
  12. DEXAMETHASONE [Suspect]
     Active Substance: DEXAMETHASONE
     Indication: Diffuse large B-cell lymphoma stage IV
     Dosage: 4 MILLIGRAM DAILY;
     Route: 037
     Dates: start: 20210915, end: 20210915
  13. DEXAMETHASONE [Suspect]
     Active Substance: DEXAMETHASONE
     Indication: Diffuse large B-cell lymphoma
     Dosage: 4 MILLIGRAM DAILY;
     Route: 037
     Dates: start: 20211014, end: 20211014
  14. PREDNISONE [Suspect]
     Active Substance: PREDNISONE
     Indication: Diffuse large B-cell lymphoma stage IV
     Dosage: 100 MILLIGRAM DAILY;
     Route: 048
     Dates: start: 20210826, end: 20210826
  15. PREDNISONE [Suspect]
     Active Substance: PREDNISONE
     Indication: Diffuse large B-cell lymphoma
     Dosage: 100 MILLIGRAM DAILY;
     Route: 042
     Dates: start: 20210827, end: 20210830
  16. PREDNISONE [Suspect]
     Active Substance: PREDNISONE
     Dosage: 100 MILLIGRAM DAILY;
     Route: 042
     Dates: start: 20210915, end: 20210918
  17. PREDNISONE [Suspect]
     Active Substance: PREDNISONE
     Dosage: 100 MILLIGRAM DAILY;
     Route: 042
     Dates: start: 20211014, end: 20211017
  18. PREDNISONE [Suspect]
     Active Substance: PREDNISONE
     Dosage: 100 MILLIGRAM DAILY;
     Route: 042
     Dates: start: 20211103, end: 20211106
  19. DOXORUBICIN HYDROCHLORIDE [Suspect]
     Active Substance: DOXORUBICIN HYDROCHLORIDE
     Indication: Diffuse large B-cell lymphoma stage IV
     Route: 042
     Dates: start: 20210826, end: 20211216
  20. PREDNISONE [Concomitant]
     Active Substance: PREDNISONE
     Dosage: ON 01-SEP-2021 AND 08-SEP-2021
     Route: 042
     Dates: start: 20210901
  21. PREDNISONE [Concomitant]
     Active Substance: PREDNISONE
     Route: 048
     Dates: start: 20210902, end: 20210904
  22. PREDNISONE [Concomitant]
     Active Substance: PREDNISONE
     Route: 048
     Dates: start: 20210909, end: 20210911
  23. DEXAMETHASONE [Concomitant]
     Active Substance: DEXAMETHASONE
     Route: 037
     Dates: start: 20211118, end: 20211118
  24. MAGNESIUM [Concomitant]
     Active Substance: MAGNESIUM
     Dates: start: 20211206, end: 20220106
  25. ALGELDRATE\MAGNESIUM HYDROXIDE [Concomitant]
     Active Substance: ALGELDRATE\MAGNESIUM HYDROXIDE
     Dates: start: 20211206, end: 20220116
  26. BRIMONIDINE [Concomitant]
     Active Substance: BRIMONIDINE TARTRATE
     Dates: start: 20210929
  27. CALCIUM\VITAMIN D [Concomitant]
     Active Substance: CALCIUM\VITAMIN D
     Dates: start: 20211202
  28. CICLOPIROX [Concomitant]
     Active Substance: CICLOPIROX
     Dates: start: 20211002
  29. DABIGATRAN [Concomitant]
     Active Substance: DABIGATRAN
     Dates: start: 20210714
  30. DIGOXIN [Concomitant]
     Active Substance: DIGOXIN
     Dates: start: 20211119, end: 20220112
  31. LEVOTHYROXINE [Concomitant]
     Active Substance: LEVOTHYROXINE
     Dates: start: 20180212
  32. LOPERAMIDE [Concomitant]
     Active Substance: LOPERAMIDE
     Dates: start: 20211207
  33. MAGNESIUM SULFATE [Concomitant]
     Active Substance: MAGNESIUM SULFATE
     Dates: start: 20220114, end: 20220114
  34. METOCLOPRAMIDE [Concomitant]
     Active Substance: METOCLOPRAMIDE
     Dates: start: 20211025, end: 20220118
  35. METOPROLOL [Concomitant]
     Active Substance: METOPROLOL
     Dates: start: 20210714
  36. NOVORAPID [Concomitant]
     Active Substance: INSULIN ASPART
     Dates: start: 20211202
  37. ACETAMINOPHEN [Concomitant]
     Active Substance: ACETAMINOPHEN
     Dates: start: 20210922
  38. PAROXETINE [Concomitant]
     Active Substance: PAROXETINE
     Dates: start: 20170123
  39. PEGFILGRASTIM [Concomitant]
     Active Substance: PEGFILGRASTIM
     Dates: start: 20210915
  40. POTASSIUM CHLORIDE [Concomitant]
     Active Substance: POTASSIUM CHLORIDE
     Dates: start: 20210929
  41. DORZOLAMIDE HYDROCHLORIDE\TIMOLOL MALEATE [Concomitant]
     Active Substance: DORZOLAMIDE HYDROCHLORIDE\TIMOLOL MALEATE
     Dates: start: 20210929, end: 20220112
  42. VANCOMYCIN [Concomitant]
     Active Substance: VANCOMYCIN
     Dates: start: 20211213, end: 20220213
  43. GRANISETRON [Concomitant]
     Active Substance: GRANISETRON
     Dates: start: 20211216, end: 20211216

REACTIONS (2)
  - Pneumonia klebsiella [Recovered/Resolved]
  - Urinary tract infection [Unknown]

NARRATIVE: CASE EVENT DATE: 20220111
